FAERS Safety Report 9261142 (Version 2)
Quarter: 2014Q1

REPORT INFORMATION
  Report Type: Report from Study
  Country: JP (occurrence: JP)
  Receive Date: 20130429
  Receipt Date: 20140321
  Transmission Date: 20141002
  Serious: Yes (Hospitalization, Other)
  Sender: FDA-Public Use
  Company Number: PHHY2013JP042104

PATIENT
  Age: 63 Year
  Sex: Female
  Weight: 40 kg

DRUGS (5)
  1. AFINITOR [Suspect]
     Indication: PANCREATIC NEUROENDOCRINE TUMOUR
     Dosage: 10 MG, DAILY
     Route: 048
     Dates: start: 20120409, end: 20120417
  2. AFINITOR [Suspect]
     Dosage: 5 MG, DAILY
     Route: 048
     Dates: start: 20120419, end: 20120614
  3. AFINITOR [Suspect]
     Dosage: 5 MG, QW
     Route: 048
     Dates: start: 20120623
  4. SANDOSTATIN LAR [Concomitant]
     Indication: PANCREATIC NEUROENDOCRINE TUMOUR
     Dosage: 30 MG, UNK
     Route: 030
     Dates: start: 20120623
  5. INSULIN [Concomitant]

REACTIONS (4)
  - Decreased appetite [Recovered/Resolved]
  - Inflammation [Recovered/Resolved]
  - Hepatic enzyme increased [Recovered/Resolved]
  - Rash [Recovered/Resolved]
